FAERS Safety Report 5805358 (Version 16)
Quarter: 2013Q1

REPORT INFORMATION
  Report Type: Spontaneous
  Country: US (occurrence: US)
  Receive Date: 20050527
  Receipt Date: 20130215
  Transmission Date: 20140127
  Serious: Yes (Hospitalization, Other)
  Sender: FDA-Public Use
  Company Number: PHEH2005US05719

PATIENT
  Age: 42 None
  Sex: Male
  Weight: 78.46 kg

DRUGS (42)
  1. VINCRISTINE + ADRIAMYCIN + DEXAMETHASONE [Concomitant]
     Indication: PLASMA CELL MYELOMA
     Dates: end: 20020410
  2. MELPHALAN [Concomitant]
     Indication: PLASMA CELL MYELOMA
     Dates: start: 20020515
  3. WELLBUTRIN [Concomitant]
     Indication: DEPRESSION
     Dosage: 150 MG, QD
     Route: 048
  4. NEXIUM [Concomitant]
     Dosage: 40 MG, QHS
     Route: 048
  5. SYNTHROID [Concomitant]
     Indication: HYPOTHYROIDISM
     Dosage: 150 MCG, QD
     Route: 048
  6. LOPRESSOR [Concomitant]
     Indication: HYPERTENSION
     Dosage: 12.5 MG, QD
     Route: 048
  7. VALTREX [Concomitant]
     Dosage: 500 MG, TID
     Route: 048
  8. PERCOCET [Concomitant]
  9. NEURONTIN [Concomitant]
     Dosage: 300 MG, TID
     Route: 048
  10. ATIVAN [Concomitant]
  11. MARIJUANA [Concomitant]
  12. ZOLOFT [Concomitant]
  13. FLOMAX [Concomitant]
  14. LUNESTA [Concomitant]
  15. PROTONIX [Concomitant]
  16. DURAGESIC [Concomitant]
  17. EFFEXOR [Concomitant]
  18. METHADONE [Concomitant]
  19. ZOLOFT (SERTRALINE HYDROCHLORIDE) [Concomitant]
  20. VANCOMYCIN [Concomitant]
  21. VALIUM [Concomitant]
  22. MAALOX                                  /USA/ [Concomitant]
  23. BENADRYL ^ACHE^ [Concomitant]
  24. COMPAZINE [Concomitant]
  25. AMBIEN [Concomitant]
  26. PHENERGAN ^MAY + BAKER^ [Concomitant]
  27. VIOXX [Concomitant]
  28. LIDOCAINE [Concomitant]
  29. ACIPHEX [Concomitant]
  30. ONDANSETRON [Concomitant]
  31. PROMETHAZINE [Concomitant]
  32. DILAUDID [Concomitant]
  33. ALLOPURINOL [Concomitant]
  34. BACTRIM [Concomitant]
  35. CAPTOPRIL [Concomitant]
  36. CEFEPIME [Concomitant]
  37. SEPTRA [Concomitant]
  38. CHEMOTHERAPEUTICS [Concomitant]
  39. ZOMETA [Suspect]
     Indication: PLASMA CELL MYELOMA
     Dosage: 4 MG, QMO
     Route: 042
     Dates: start: 2002, end: 20030321
  40. ZOMETA [Suspect]
     Indication: METASTASES TO BONE
     Dosage: 4 MG, QMO
     Route: 042
     Dates: end: 20050519
  41. ZOMETA [Suspect]
     Indication: HYPERCALCAEMIA
  42. CIPROFLOXACIN [Suspect]

REACTIONS (128)
  - Cardiomyopathy [Unknown]
  - Catheterisation cardiac [Unknown]
  - Left ventricular hypertrophy [Unknown]
  - Mitral valve incompetence [Unknown]
  - Ventricular arrhythmia [Unknown]
  - Ventricular tachycardia [Unknown]
  - Cardiac disorder [Unknown]
  - Osteonecrosis of jaw [Unknown]
  - Osteomyelitis [Unknown]
  - Oral disorder [Unknown]
  - Bone disorder [Unknown]
  - Pain in jaw [Unknown]
  - Periodontitis [Recovered/Resolved]
  - Dental caries [Recovered/Resolved]
  - General physical health deterioration [Unknown]
  - Decreased interest [Unknown]
  - Anxiety [Unknown]
  - Mental status changes [Unknown]
  - Hallucination [Unknown]
  - Drug abuse [Unknown]
  - Drug screen positive [Unknown]
  - Mental disorder [Unknown]
  - Cyst [Unknown]
  - Musculoskeletal discomfort [Unknown]
  - Prostatitis [Unknown]
  - Headache [Unknown]
  - Pyrexia [Recovered/Resolved]
  - Impaired healing [Unknown]
  - Wound dehiscence [Unknown]
  - Denture wearer [Unknown]
  - Mouth ulceration [Unknown]
  - Bone swelling [Unknown]
  - Cellulitis [Unknown]
  - Primary sequestrum [Unknown]
  - Abscess jaw [Unknown]
  - Convulsion [Unknown]
  - Ataxia [Unknown]
  - Flushing [Unknown]
  - Excoriation [Unknown]
  - Rhinitis [Unknown]
  - Productive cough [Unknown]
  - Upper-airway cough syndrome [Unknown]
  - Nasal congestion [Unknown]
  - Depression [Unknown]
  - Decubitus ulcer [Unknown]
  - Bone lesion [Unknown]
  - Device breakage [Unknown]
  - Platelet count decreased [Unknown]
  - Red blood cell count decreased [Unknown]
  - Haemoglobin decreased [Unknown]
  - Haematocrit decreased [Unknown]
  - White blood cell count increased [Unknown]
  - Blood immunoglobulin G increased [Unknown]
  - Blood alkaline phosphatase increased [Unknown]
  - Cardiomegaly [Unknown]
  - Lung disorder [Unknown]
  - Urinary retention [Unknown]
  - Erectile dysfunction [Unknown]
  - Libido decreased [Unknown]
  - Penile pain [Unknown]
  - Penis disorder [Unknown]
  - Peyronie^s disease [Unknown]
  - Hypoglycaemia [Unknown]
  - Osteolysis [Unknown]
  - Osteonecrosis [Unknown]
  - Temporomandibular joint syndrome [Unknown]
  - Influenza like illness [Unknown]
  - Rib fracture [Unknown]
  - Back pain [Not Recovered/Not Resolved]
  - Arthritis [Unknown]
  - Disability [Unknown]
  - Marrow hyperplasia [Unknown]
  - Plasmacytosis [Unknown]
  - Left ventricular dysfunction [Unknown]
  - Arrhythmia [Unknown]
  - Inflammation [Unknown]
  - Bacterial disease carrier [Unknown]
  - Overweight [Unknown]
  - Facial pain [Unknown]
  - Pain [Unknown]
  - Radiculopathy [Unknown]
  - Pain in extremity [Unknown]
  - Diabetic neuropathy [Unknown]
  - Pneumonia [Unknown]
  - Sepsis [Unknown]
  - Hepatitis [Unknown]
  - Pneumothorax [Unknown]
  - Diabetes mellitus [Unknown]
  - Insomnia [Unknown]
  - Acute respiratory distress syndrome [Unknown]
  - Vision blurred [Unknown]
  - Gastritis [Unknown]
  - Melaena [Unknown]
  - Intervertebral disc protrusion [Unknown]
  - Spinal disorder [Unknown]
  - Anaemia [Unknown]
  - Urticaria [Unknown]
  - Burning sensation [Unknown]
  - Deafness [Unknown]
  - Hypogonadism [Unknown]
  - Abdominal pain [Unknown]
  - Stevens-Johnson syndrome [Unknown]
  - Osteitis deformans [Unknown]
  - Oropharyngeal plaque [Unknown]
  - Sinus disorder [Unknown]
  - Local swelling [Unknown]
  - Fall [Unknown]
  - Amnesia [Unknown]
  - Abdominal distension [Unknown]
  - Pancreatic duct dilatation [Unknown]
  - Pancreatic calcification [Unknown]
  - Lymphadenopathy [Unknown]
  - Hepatic lesion [Unknown]
  - Hepatic steatosis [Unknown]
  - Foot fracture [Unknown]
  - Granuloma annulare [Unknown]
  - Seborrhoeic keratosis [Unknown]
  - Acute respiratory failure [Unknown]
  - Hypoxia [Unknown]
  - Renal failure acute [Unknown]
  - Hepatic failure [Unknown]
  - Emphysema [Unknown]
  - Pulmonary mass [Unknown]
  - Pneumomediastinum [Unknown]
  - Lung infiltration [Unknown]
  - Hepatic cyst [Unknown]
  - Leukocytosis [Unknown]
  - Tubulointerstitial nephritis [Unknown]
